FAERS Safety Report 6758081-6 (Version None)
Quarter: 2010Q2

REPORT INFORMATION
  Report Type: 
  Country: None (occurrence: None)
  Receive Date: 20100607
  Receipt Date: 20100526
  Transmission Date: 20101027
  Serious: Yes (Hospitalization)
  Sender: FDA-Public Use
  Company Number: ES-ELI_LILLY_AND_COMPANY-ES201005007261

PATIENT
  Sex: Female
  Weight: 61 kg

DRUGS (5)
  1. FORTEO [Suspect]
     Indication: OSTEOPOROSIS
     Dosage: 20 UG, DAILY (1/D)
     Route: 058
     Dates: start: 20090501, end: 20100517
  2. FLECAINIDE ACETATE [Concomitant]
     Indication: CARDIAC DISORDER
     Dosage: 100 MG, 2/D
     Route: 048
     Dates: start: 20070101
  3. PANTOPRAZOL [Concomitant]
     Dosage: 40 MG, DAILY (1/D)
     Route: 048
  4. VENLAFAXINA [Concomitant]
     Indication: DEPRESSION
     Dosage: 37.5 MG, DAILY (1/D)
     Route: 048
  5. MASTICAL D [Concomitant]
     Indication: MINERAL SUPPLEMENTATION
     Dosage: UNK, 2/D
     Route: 048
     Dates: start: 20090501

REACTIONS (2)
  - GALLBLADDER DISORDER [None]
  - MUSCLE SPASMS [None]
